FAERS Safety Report 9585774 (Version 1)
Quarter: 2013Q4

REPORT INFORMATION
  Report Type: Spontaneous
  Country: IT (occurrence: None)
  Receive Date: 20131001
  Receipt Date: 20131001
  Transmission Date: 20140711
  Serious: Yes (Hospitalization)
  Sender: FDA-Public Use
  Company Number: GER/ITL/13/0034676

PATIENT
  Age: 83 Year
  Sex: Male

DRUGS (5)
  1. LANSOPRAZOLE [Suspect]
     Indication: GASTRIC ULCER
     Dosage: 30 MG, 1 IN 1 D, ORAL
     Route: 048
  2. ACETYLSALICYLIC ACID ( ACETYLSALICYLIC ACID) [Concomitant]
  3. CANDESARTAN CILEXETIL/HYDROCHLOROTHIAZIDE ( BLOPRESS PLUS) [Concomitant]
  4. CARVEDILOL ( CARVEDILOL) [Concomitant]
  5. FUROSEMIDE(FUROSEMIDE) [Concomitant]

REACTIONS (1)
  - Epidermolysis bullosa [None]
